FAERS Safety Report 7875399-4 (Version None)
Quarter: 2011Q4

REPORT INFORMATION
  Report Type: 
  Country: None (occurrence: None)
  Receive Date: 20111031
  Receipt Date: 20111019
  Transmission Date: 20120403
  Serious: Yes (Other)
  Sender: FDA-Public Use
  Company Number: PHHY2011BR93480

PATIENT
  Sex: Female
  Weight: 55 kg

DRUGS (4)
  1. DIOVAN HCT [Suspect]
     Indication: HYPERTENSION
     Dosage: 1 DF, (320/2.5 MG ONE TABLET DAILY)
     Route: 048
     Dates: end: 20111019
  2. ATENOLOL [Concomitant]
     Dosage: 50 MG, (ONE TABLET DAILY)
     Route: 048
  3. CLONAZEPAM [Concomitant]
     Indication: DEPRESSION
     Dosage: 2 MG,(ONE TABLET DAILY)
     Route: 048
  4. VYTORIN [Concomitant]
     Indication: BLOOD CHOLESTEROL INCREASED
     Dosage: 1 DF, (10/20 MG ONE TABLET DAILY)
     Route: 048

REACTIONS (2)
  - CATARACT [None]
  - BLOOD PRESSURE INCREASED [None]
